FAERS Safety Report 23177542 (Version 2)
Quarter: 2023Q4

REPORT INFORMATION
  Report Type: Spontaneous
  Country: CN (occurrence: CN)
  Receive Date: 20231113
  Receipt Date: 20231121
  Transmission Date: 20240109
  Serious: Yes (Life-Threatening)
  Sender: FDA-Public Use
  Company Number: CN-BAYER-2023A147638

PATIENT
  Age: 55 Year
  Sex: Female

DRUGS (2)
  1. ULTRAVIST [Suspect]
     Active Substance: IOPROMIDE
     Indication: Hepatic angiogram
     Dosage: 40 ML, ONCE
     Dates: start: 20231011, end: 20231011
  2. ULTRAVIST [Suspect]
     Active Substance: IOPROMIDE
     Indication: Portal shunt procedure

REACTIONS (8)
  - Anaphylactic shock [Recovering/Resolving]
  - Sneezing [None]
  - Rash [None]
  - Ocular hyperaemia [None]
  - Neck pain [None]
  - Nasal obstruction [None]
  - Heart rate decreased [None]
  - Blood pressure decreased [None]

NARRATIVE: CASE EVENT DATE: 20231011
